FAERS Safety Report 13073282 (Version 1)
Quarter: 2016Q4

REPORT INFORMATION
  Report Type: Spontaneous
  Country: GB (occurrence: GB)
  Receive Date: 20161229
  Receipt Date: 20161229
  Transmission Date: 20170207
  Serious: Yes (Other)
  Sender: FDA-Public Use
  Company Number: US-BRAINTREE LABORATORIES-160906

PATIENT
  Age: 35 Year
  Sex: Female

DRUGS (1)
  1. EZICLEN [Suspect]
     Active Substance: MAGNESIUM SULFATE\POTASSIUM SULFATE\SODIUM SULFATE
     Indication: COLONOSCOPY
     Route: 048
     Dates: start: 20161123, end: 20161124

REACTIONS (5)
  - Gait disturbance [None]
  - Diplopia [None]
  - Coordination abnormal [None]
  - Sensory level abnormal [None]
  - Multiple sclerosis relapse [None]

NARRATIVE: CASE EVENT DATE: 20161125
